FAERS Safety Report 7574234-1 (Version None)
Quarter: 2011Q2

REPORT INFORMATION
  Report Type: 
  Country: None (occurrence: None)
  Receive Date: 20110627
  Receipt Date: 20110622
  Transmission Date: 20111010
  Serious: Yes (Death, Hospitalization)
  Sender: FDA-Public Use
  Company Number: FR-ROCHE-781281

PATIENT
  Sex: Female
  Weight: 60 kg

DRUGS (9)
  1. ACUPAN [Concomitant]
  2. BEVACIZUMAB [Suspect]
     Indication: GLIOBLASTOMA
     Dosage: LAST DOSE PRIOR TO SAE: 19 MAY 2011
     Route: 065
     Dates: start: 20110504
  3. MOTILIUM [Concomitant]
  4. OXAZEPAM [Concomitant]
     Dosage: TOTAL DAILY DOSE: 20
  5. ACEBUTOLOL [Concomitant]
     Dosage: TOTAL DAILY DOSE: 600
  6. MODURETIC 5-50 [Concomitant]
  7. TEMOZOLOMIDE [Suspect]
     Indication: GLIOBLASTOMA
     Dosage: DATE OF LAST DOSE PRIOR TO SAE: 4 MAY 2011, ROUTE PER OS.
     Route: 050
     Dates: start: 20110504
  8. PREDNISONE [Concomitant]
  9. NEXIUM [Concomitant]

REACTIONS (3)
  - ORAL HERPES [None]
  - BRONCHIAL OBSTRUCTION [None]
  - FATIGUE [None]
